FAERS Safety Report 21298615 (Version 1)
Quarter: 2022Q3

REPORT INFORMATION
  Report Type: Spontaneous
  Country: US (occurrence: None)
  Receive Date: 20220904
  Receipt Date: 20220904
  Transmission Date: 20221027
  Serious: Yes (Hospitalization)
  Sender: FDA-Public Use
  Company Number: None

PATIENT
  Sex: Male
  Weight: 58.7 kg

DRUGS (3)
  1. ACALABRUTINIB [Suspect]
     Active Substance: ACALABRUTINIB
     Dates: end: 20220821
  2. CYTARABINE [Suspect]
     Active Substance: CYTARABINE
     Dates: end: 20220817
  3. RITUXIMAB [Suspect]
     Active Substance: RITUXIMAB
     Dates: end: 20220815

REACTIONS (12)
  - Fatigue [None]
  - Nausea [None]
  - White blood cell count decreased [None]
  - Platelet count decreased [None]
  - Pyrexia [None]
  - Neutrophil count decreased [None]
  - Septic shock [None]
  - Acute kidney injury [None]
  - Hypotension [None]
  - Hypovolaemic shock [None]
  - Escherichia bacteraemia [None]
  - Clostridium difficile colitis [None]

NARRATIVE: CASE EVENT DATE: 20220825
